FAERS Safety Report 9524849 (Version 1)
Quarter: 2013Q3

REPORT INFORMATION
  Report Type: Spontaneous
  Country: US (occurrence: None)
  Receive Date: 20130912
  Receipt Date: 20130912
  Transmission Date: 20140515
  Serious: Yes (Hospitalization)
  Sender: FDA-Public Use
  Company Number: SYM-2013-10487

PATIENT
  Age: 34 Year
  Sex: Male

DRUGS (3)
  1. FLUOROURACIL (FLUOROURACIL) (SOLUTION FOR INFUSION) (FLUORORACIL) [Suspect]
     Indication: RECTAL CANCER STAGE III
     Dosage: 225 MG/M2/24, ORAL
     Route: 048
  2. CAPECITABINE (CAPECTIABINE) (CAPECITABINE) [Suspect]
     Indication: RECTAL CANCER STAGE III
     Dosage: 1600 MG/M2/24
     Route: 048
  3. THERAPEUTIC RADIOPHARMACEUTICALS (THERAPEUTIC RADIOPHARMECUTICALS) [Concomitant]

REACTIONS (6)
  - Cardiotoxicity [None]
  - Chest pain [None]
  - Blood creatine phosphokinase increased [None]
  - Blood creatine phosphokinase MB increased [None]
  - Troponin increased [None]
  - Electrocardiogram T wave inversion [None]
